FAERS Safety Report 22254801 (Version 1)
Quarter: 2023Q2

REPORT INFORMATION
  Report Type: Spontaneous
  Country: NL (occurrence: NL)
  Receive Date: 20230426
  Receipt Date: 20230426
  Transmission Date: 20230722
  Serious: Yes (Life-Threatening)
  Sender: FDA-Public Use
  Company Number: None

PATIENT
  Sex: Male
  Weight: 115 kg

DRUGS (1)
  1. ZOLPIDEM [Suspect]
     Active Substance: ZOLPIDEM TARTRATE
     Indication: Insomnia
     Dosage: 10 MG, QD (1XPD 1 STUK)
     Route: 065
     Dates: start: 20110801, end: 20230215

REACTIONS (2)
  - Amnesia [Recovered/Resolved]
  - Confusional state [Not Recovered/Not Resolved]
